FAERS Safety Report 22159405 (Version 2)
Quarter: 2023Q2

REPORT INFORMATION
  Report Type: Spontaneous
  Country: US (occurrence: US)
  Receive Date: 20230331
  Receipt Date: 20230410
  Transmission Date: 20230722
  Serious: No
  Sender: FDA-Public Use
  Company Number: US-GSK-US2023AMR046681

PATIENT
  Age: 28 Year
  Sex: Female

DRUGS (5)
  1. BENLYSTA [Interacting]
     Active Substance: BELIMUMAB
     Indication: Lupus nephritis
     Dosage: 10 MG/KG, Z (ON DAY 0, DAY 14, AND DAY 28 THEN EVERY 4 WEEKS)
     Dates: start: 202211
  2. VOCLOSPORIN [Interacting]
     Active Substance: VOCLOSPORIN
     Indication: Lupus nephritis
     Dosage: 23.7 MG, BID
  3. VOCLOSPORIN [Interacting]
     Active Substance: VOCLOSPORIN
     Dosage: 15.8 MG, BID
  4. MYCOPHENOLIC ACID [Suspect]
     Active Substance: MYCOPHENOLIC ACID
     Indication: Product used for unknown indication
     Dosage: UNK
  5. HYDROXYCHLOROQUINE [Suspect]
     Active Substance: HYDROXYCHLOROQUINE
     Indication: Product used for unknown indication
     Dosage: UNK

REACTIONS (3)
  - Drug interaction [Unknown]
  - Product use issue [Unknown]
  - Drug ineffective [Unknown]
